FAERS Safety Report 4723534-9 (Version None)
Quarter: 2005Q3

REPORT INFORMATION
  Report Type: 
  Country: None (occurrence: None)
  Receive Date: 20050720
  Receipt Date: 20050720
  Transmission Date: 20060218
  Serious: Yes (Death)
  Sender: FDA-Public Use
  Company Number: None

PATIENT
  Age: 53 Year
  Sex: Male
  Weight: 131.5431 kg

DRUGS (2)
  1. LEXAPRO [Suspect]
     Indication: DEPRESSION
     Dates: start: 20040401, end: 20040701
  2. WELLBUTRIN [Suspect]
     Indication: DEPRESSION
     Dates: end: 20040701

REACTIONS (3)
  - ANAPHYLACTIC SHOCK [None]
  - OBSTRUCTIVE AIRWAYS DISORDER [None]
  - SWELLING [None]
